FAERS Safety Report 11525365 (Version 1)
Quarter: 2015Q3

REPORT INFORMATION
  Report Type: Spontaneous
  Country: JP (occurrence: JP)
  Receive Date: 20150918
  Receipt Date: 20150918
  Transmission Date: 20151125
  Serious: Yes (Death)
  Sender: FDA-Public Use
  Company Number: JP-PURDUE PHARMA-GBR-2015-0030878

PATIENT
  Age: 60 Year
  Sex: Male

DRUGS (1)
  1. OXYCODONE HYDROCHLORIDE. [Suspect]
     Active Substance: OXYCODONE HYDROCHLORIDE
     Indication: CANCER PAIN
     Dosage: 25 MG, DAILY
     Route: 065
     Dates: start: 20150817, end: 20150901

REACTIONS (1)
  - Malignant neoplasm progression [Fatal]
